FAERS Safety Report 7708104-2 (Version None)
Quarter: 2011Q3

REPORT INFORMATION
  Report Type: 
  Country: None (occurrence: None)
  Receive Date: 20110825
  Receipt Date: 20110816
  Transmission Date: 20111222
  Serious: Yes (Hospitalization)
  Sender: FDA-Public Use
  Company Number: US-BIOGENIDEC-2011BI000584

PATIENT
  Age: 56 Year
  Sex: Female

DRUGS (2)
  1. ADVIL LIQUI-GELS [Concomitant]
  2. AVONEX [Suspect]
     Indication: MULTIPLE SCLEROSIS
     Route: 030
     Dates: start: 20000613

REACTIONS (2)
  - BREAST CANCER STAGE I [None]
  - LIVER FUNCTION TEST ABNORMAL [None]
